FAERS Safety Report 8536633 (Version 3)
Quarter: 2013Q1

REPORT INFORMATION
  Report Type: Spontaneous
  Country: US (occurrence: None)
  Receive Date: 20120419
  Receipt Date: 20121116
  Transmission Date: 20140127
  Serious: Yes (Life-Threatening, Hospitalization)
  Sender: FDA-Public Use
  Company Number: 132527

PATIENT
  Age: 67 Year
  Sex: Male
  Weight: 67 kg

DRUGS (1)
  1. LEUCOVORIN CALCIUM [Suspect]
     Indication: OESOPHAGEAL CARCINOMA
     Dosage: DAY 1 EVERY 14 DAYS
     Route: 042
     Dates: start: 20120327

REACTIONS (3)
  - Heart rate increased [None]
  - Atrial fibrillation [None]
  - No therapeutic response [None]
